FAERS Safety Report 15937475 (Version 1)
Quarter: 2019Q1

REPORT INFORMATION
  Report Type: Spontaneous
  Country: US (occurrence: US)
  Receive Date: 20190117
  Receipt Date: 20190117
  Transmission Date: 20190417
  Serious: No
  Sender: FDA-Public Use
  Company Number: None

PATIENT
  Age: 64 Year
  Sex: Female

DRUGS (1)
  1. LETAIRIS [Suspect]
     Active Substance: AMBRISENTAN
     Route: 048
     Dates: start: 20101217

REACTIONS (3)
  - Upper respiratory tract infection [None]
  - Rhinovirus infection [None]
  - Diabetic ketoacidosis [None]

NARRATIVE: CASE EVENT DATE: 20181229
